FAERS Safety Report 4955766-9 (Version None)
Quarter: 2006Q1

REPORT INFORMATION
  Report Type: 
  Country: None (occurrence: None)
  Receive Date: 20060127
  Receipt Date: 20041022
  Transmission Date: 20060701
  Serious: Yes (Hospitalization)
  Sender: FDA-Public Use
  Company Number: 04-10-1606

PATIENT
  Age: 47 Year
  Sex: Male

DRUGS (1)
  1. CLOZAPINE [Suspect]
     Dosage: 400 MG  QD, ORAL
     Route: 048
     Dates: start: 19980901, end: 20020301

REACTIONS (2)
  - CATATONIA [None]
  - ORTHOSTATIC HYPOTENSION [None]
